FAERS Safety Report 7521537-2 (Version None)
Quarter: 2011Q2

REPORT INFORMATION
  Report Type: 
  Country: None (occurrence: None)
  Receive Date: 20110531
  Receipt Date: 20110517
  Transmission Date: 20111010
  Serious: Yes (Death)
  Sender: FDA-Public Use
  Company Number: JPI-P-014811

PATIENT
  Age: 57 Year
  Sex: Male

DRUGS (2)
  1. XYREM [Suspect]
     Indication: PRODUCT USED FOR UNKNOWN INDICATION
     Dosage: 6  GM (3 GM, 2 IN 1 D), ORAL; 10.5 GM (5.25 GM, 2 IN 1 D), ORAL
     Route: 048
     Dates: start: 20050317, end: 20050411
  2. XYREM [Suspect]
     Indication: PRODUCT USED FOR UNKNOWN INDICATION
     Dosage: 6  GM (3 GM, 2 IN 1 D), ORAL; 10.5 GM (5.25 GM, 2 IN 1 D), ORAL
     Route: 048
     Dates: start: 20050412, end: 20060419

REACTIONS (1)
  - MYOCARDIAL INFARCTION [None]
